FAERS Safety Report 8170851 (Version 3)
Quarter: 2013Q1

REPORT INFORMATION
  Report Type: Spontaneous
  Country: US (occurrence: US)
  Receive Date: 20111006
  Receipt Date: 20130102
  Transmission Date: 20140127
  Serious: Yes (Life-Threatening, Hospitalization)
  Sender: FDA-Public Use
  Company Number: US-BAYER-2011-093744

PATIENT
  Age: 29 Year
  Sex: Female
  Weight: 61.22 kg

DRUGS (8)
  1. YAZ [Suspect]
     Dosage: UNK
     Dates: start: 200306, end: 200401
  2. YASMIN [Suspect]
     Dosage: UNK
     Dates: start: 199906, end: 200201
  3. SOMA [Concomitant]
     Dosage: 350 MG, UNK
  4. PAXIL [Concomitant]
     Dosage: 25 MG, UNK
  5. PAXIL [Concomitant]
     Dosage: 50 MG, UNK
  6. ELAVIL [Concomitant]
     Dosage: 10 MG, UNK
  7. VICODIN [Concomitant]
  8. MORPHINE [Concomitant]
     Dosage: UNK
     Dates: start: 20031027

REACTIONS (7)
  - Myocardial infarction [None]
  - Pain [None]
  - Injury [None]
  - Emotional distress [None]
  - Anxiety [None]
  - Anhedonia [None]
  - General physical health deterioration [None]
